FAERS Safety Report 24695867 (Version 1)
Quarter: 2024Q4

REPORT INFORMATION
  Report Type: Spontaneous
  Country: US (occurrence: US)
  Receive Date: 20241204
  Receipt Date: 20241204
  Transmission Date: 20250115
  Serious: Yes (Hospitalization, Other)
  Sender: IPCA
  Company Number: US-IPCA LABORATORIES LIMITED-IPC-2024-US-002783

PATIENT

DRUGS (1)
  1. METFORMIN [Suspect]
     Active Substance: METFORMIN HYDROCHLORIDE
     Indication: Product used for unknown indication
     Dosage: UNK
     Route: 065

REACTIONS (11)
  - Lactic acidosis [Recovering/Resolving]
  - Pancytopenia [Recovering/Resolving]
  - Shock [Unknown]
  - Urine output decreased [Unknown]
  - Hypertransaminasaemia [Unknown]
  - Condition aggravated [Unknown]
  - Blood lactate dehydrogenase increased [Unknown]
  - Hypertriglyceridaemia [Unknown]
  - Hepatic enzyme abnormal [Recovering/Resolving]
  - Fall [Unknown]
  - Toxicity to various agents [Unknown]
